FAERS Safety Report 9792326 (Version 1)
Quarter: 2014Q1

REPORT INFORMATION
  Report Type: Spontaneous
  Country: None (occurrence: US)
  Receive Date: 20140102
  Receipt Date: 20140102
  Transmission Date: 20141002
  Serious: No
  Sender: FDA-Public Use
  Company Number: -BIOGENIDEC-2013BI122907

PATIENT
  Sex: 0

DRUGS (1)
  1. TECFIDERA [Suspect]
     Indication: PRODUCT USED FOR UNKNOWN INDICATION
     Route: 048
     Dates: start: 20131025

REACTIONS (5)
  - Balance disorder [Unknown]
  - Asthenia [Unknown]
  - Hypoaesthesia [Unknown]
  - Feeling abnormal [Unknown]
  - Multiple sclerosis relapse [Not Recovered/Not Resolved]
